FAERS Safety Report 7887149-6 (Version None)
Quarter: 2011Q4

REPORT INFORMATION
  Report Type: 
  Country: None (occurrence: None)
  Receive Date: 20111102
  Receipt Date: 20110715
  Transmission Date: 20120403
  Serious: No
  Sender: FDA-Public Use
  Company Number: US-AMGEN-USASP2011036136

PATIENT
  Age: 51 Year
  Sex: Male

DRUGS (2)
  1. TREXALL [Concomitant]
     Dosage: 1 MG, QWK
     Dates: start: 20110624
  2. ENBREL [Suspect]
     Indication: ANKYLOSING SPONDYLITIS
     Dosage: 25 MG, 2 TIMES/WK
     Dates: start: 20041001, end: 20110530

REACTIONS (5)
  - ANKYLOSING SPONDYLITIS [None]
  - BACK PAIN [None]
  - MUSCULOSKELETAL STIFFNESS [None]
  - PAIN IN EXTREMITY [None]
  - DRUG INEFFECTIVE [None]
